FAERS Safety Report 7246910-1 (Version None)
Quarter: 2011Q1

REPORT INFORMATION
  Report Type: 
  Country: None (occurrence: None)
  Receive Date: 20110127
  Receipt Date: 20110119
  Transmission Date: 20110831
  Serious: Yes (Hospitalization)
  Sender: FDA-Public Use
  Company Number: PHHY2011IT04678

PATIENT
  Sex: Female

DRUGS (1)
  1. VOLTFAST [Suspect]
     Indication: DYSMENORRHOEA
     Dosage: 50 MG, UNK
     Route: 048
     Dates: start: 20101123, end: 20101123

REACTIONS (2)
  - URTICARIA [None]
  - OEDEMA [None]
